FAERS Safety Report 4524947-0 (Version None)
Quarter: 2004Q4

REPORT INFORMATION
  Report Type: 
  Country: None (occurrence: None)
  Receive Date: 20041208
  Receipt Date: 20041126
  Transmission Date: 20050328
  Serious: Yes (Life-Threatening, Hospitalization, Other)
  Sender: FDA-Public Use
  Company Number: 2004088893

PATIENT
  Age: 82 Year
  Sex: Female

DRUGS (6)
  1. LIPITOR [Suspect]
     Indication: BLOOD CHOLESTEROL INCREASED
     Dosage: 40 MG (40 MG) ORAL
     Route: 048
     Dates: start: 20040804, end: 20041103
  2. LEVOTHYROXINE SODIUM [Concomitant]
  3. HYZAAR [Concomitant]
  4. METOPROLOL TARTRATE [Concomitant]
  5. ACETYLSALICYLIC ACID) [Concomitant]
  6. ALENDRONATE SODIUM [Concomitant]

REACTIONS (6)
  - AMNESIA [None]
  - HEADACHE [None]
  - NAUSEA [None]
  - NEUROLOGICAL SYMPTOM [None]
  - PAIN IN EXTREMITY [None]
  - SPEECH DISORDER [None]
